FAERS Safety Report 8939239 (Version 1)
Quarter: 2012Q4

REPORT INFORMATION
  Report Type: 
  Country: FR (occurrence: FR)
  Receive Date: 20121203
  Receipt Date: 20121203
  Transmission Date: 20130627
  Serious: Yes (Other)
  Sender: FDA-Public Use
  Company Number: FR-SANOFI-AVENTIS-2012SA085563

PATIENT
  Age: 74 Year
  Sex: Male

DRUGS (9)
  1. KAYEXALATE [Suspect]
     Indication: HYPERKALEMIA
     Route: 048
     Dates: start: 20120920, end: 20120920
  2. NOVORAPID [Concomitant]
     Indication: TYPE 1 DIABETES MELLITUS
     Route: 058
  3. LANTUS [Concomitant]
     Indication: TYPE 1 DIABETES MELLITUS
     Route: 058
  4. ATORVASTATIN [Concomitant]
  5. PERINDOPRIL [Concomitant]
  6. ALDACTAZINE [Concomitant]
  7. KARDEGIC [Concomitant]
  8. NEBIVOLOL [Concomitant]
  9. AMLOR [Concomitant]

REACTIONS (1)
  - Drug prescribing error [Unknown]
